FAERS Safety Report 11603565 (Version 1)
Quarter: 2015Q4

REPORT INFORMATION
  Report Type: Spontaneous
  Country: US (occurrence: None)
  Receive Date: 20151006
  Receipt Date: 20151006
  Transmission Date: 20160304
  Serious: No
  Sender: FDA-Public Use
  Company Number: None

PATIENT
  Age: 4 Year
  Sex: Female
  Weight: 18.14 kg

DRUGS (2)
  1. GUANFACINE ER 3MG ACTIVIS [Suspect]
     Active Substance: GUANFACINE
     Indication: ATTENTION DEFICIT/HYPERACTIVITY DISORDER
     Dosage: 1 TAB QD ORAL
     Route: 048
     Dates: start: 20150902, end: 20151005
  2. GUANFACINE ER 3MG ACTIVIS [Suspect]
     Active Substance: GUANFACINE
     Indication: ABNORMAL BEHAVIOUR
     Dosage: 1 TAB QD ORAL
     Route: 048
     Dates: start: 20150902, end: 20151005

REACTIONS (2)
  - Disease recurrence [None]
  - Product substitution issue [None]

NARRATIVE: CASE EVENT DATE: 20150902
